FAERS Safety Report 5201939-X (Version None)
Quarter: 2007Q1

REPORT INFORMATION
  Report Type: 
  Country: None (occurrence: None)
  Receive Date: 20070104
  Receipt Date: 20061222
  Transmission Date: 20070707
  Serious: Yes (Other)
  Sender: FDA-Public Use
  Company Number: 151254ISR

PATIENT
  Sex: Female

DRUGS (2)
  1. DICLOFENAC SODIUM [Suspect]
  2. CLOPIDOGREL [Suspect]
     Dosage: 75 MG
     Route: 048

REACTIONS (1)
  - PERICARDIAL HAEMORRHAGE [None]
